FAERS Safety Report 10594166 (Version 1)
Quarter: 2014Q4

REPORT INFORMATION
  Report Type: Spontaneous
  Country: US (occurrence: US)
  Receive Date: 20141119
  Receipt Date: 20141119
  Transmission Date: 20150529
  Serious: Yes (Hospitalization, Other)
  Sender: FDA-Public Use
  Company Number: US-ELI_LILLY_AND_COMPANY-US201411003378

PATIENT
  Sex: Female

DRUGS (1)
  1. HUMATROPE [Suspect]
     Active Substance: SOMATROPIN
     Indication: GROWTH HORMONE DEFICIENCY
     Dosage: 0.3 MG, QD
     Route: 065
     Dates: start: 2013

REACTIONS (8)
  - Hypotension [Unknown]
  - Dehydration [Unknown]
  - Loss of consciousness [Unknown]
  - Vomiting [Unknown]
  - Tendon rupture [Unknown]
  - Thrombosis [Unknown]
  - Diarrhoea [Unknown]
  - Pulmonary thrombosis [Unknown]
